FAERS Safety Report 6008187-4 (Version None)
Quarter: 2008Q4

REPORT INFORMATION
  Report Type: 
  Country: None (occurrence: None)
  Receive Date: 20081217
  Receipt Date: 20080721
  Transmission Date: 20090506
  Serious: No
  Sender: FDA-Public Use
  Company Number: US-ASTRAZENECA-2008UW15139

PATIENT
  Age: 75 Year
  Sex: Female
  Weight: 49.9 kg

DRUGS (4)
  1. CRESTOR [Suspect]
     Indication: BLOOD CHOLESTEROL
     Route: 048
  2. FIORINAL [Concomitant]
  3. CARBIDOPA [Concomitant]
  4. VICODIN [Concomitant]

REACTIONS (1)
  - DIARRHOEA [None]
